FAERS Safety Report 18177708 (Version 1)
Quarter: 2020Q3

REPORT INFORMATION
  Report Type: Other
  Country: US (occurrence: US)
  Receive Date: 20200821
  Receipt Date: 20200821
  Transmission Date: 20201103
  Serious: Yes (Other)
  Sender: FDA-Public Use
  Company Number: US-ROCHE-2661832

PATIENT

DRUGS (3)
  1. LENALIDOMIDE [Concomitant]
     Active Substance: LENALIDOMIDE
     Indication: DIFFUSE LARGE B-CELL LYMPHOMA
     Dosage: (15?25 MG) ON DAYS 1?21 OF A 28?DAY CYCLE
     Route: 065
  2. RITUXIMAB. [Suspect]
     Active Substance: RITUXIMAB
     Indication: DIFFUSE LARGE B-CELL LYMPHOMA
     Dosage: DURING CYCLE 1
     Route: 065
  3. RITUXIMAB. [Suspect]
     Active Substance: RITUXIMAB
     Dosage: FOR SUBSEQUENT CYCLES
     Route: 065

REACTIONS (10)
  - Muscle spasms [Unknown]
  - Rash [Unknown]
  - Leukopenia [Unknown]
  - Abdominal pain [Unknown]
  - Arthralgia [Unknown]
  - Neutropenia [Unknown]
  - Infection [Unknown]
  - Anaemia [Unknown]
  - Diarrhoea [Unknown]
  - Thrombocytopenia [Unknown]
